FAERS Safety Report 10692930 (Version 1)
Quarter: 2015Q1

REPORT INFORMATION
  Report Type: Spontaneous
  Country: US (occurrence: None)
  Receive Date: 20150105
  Receipt Date: 20150105
  Transmission Date: 20150720
  Serious: Yes (Life-Threatening, Disabling)
  Sender: FDA-Public Use
  Company Number: None

PATIENT
  Age: 58 Year
  Sex: Female

DRUGS (1)
  1. VIIBRYD [Suspect]
     Active Substance: VILAZODONE HYDROCHLORIDE
     Indication: DEPRESSION
     Dosage: PER DAY
     Route: 048

REACTIONS (8)
  - Fear [None]
  - Respiratory disorder [None]
  - Anaphylactic reaction [None]
  - Blood pressure increased [None]
  - VIIth nerve paralysis [None]
  - Paraesthesia [None]
  - Cerebrovascular accident [None]
  - Agitation [None]

NARRATIVE: CASE EVENT DATE: 20131115
